FAERS Safety Report 25045651 (Version 1)
Quarter: 2025Q1

REPORT INFORMATION
  Report Type: Spontaneous
  Country: DE (occurrence: DE)
  Receive Date: 20250306
  Receipt Date: 20250306
  Transmission Date: 20250408
  Serious: Yes (Other)
  Sender: MYLAN
  Company Number: DE-MYLANLABS-2025M1018384

PATIENT
  Sex: Male

DRUGS (44)
  1. VALPROIC ACID [Suspect]
     Active Substance: VALPROIC ACID
     Indication: Partial seizures
  2. VALPROIC ACID [Suspect]
     Active Substance: VALPROIC ACID
     Indication: Rasmussen encephalitis
     Route: 065
  3. VALPROIC ACID [Suspect]
     Active Substance: VALPROIC ACID
     Route: 065
  4. VALPROIC ACID [Suspect]
     Active Substance: VALPROIC ACID
  5. LEVETIRACETAM [Suspect]
     Active Substance: LEVETIRACETAM
     Indication: Partial seizures
     Dosage: 3000 MILLIGRAM, QD
  6. LEVETIRACETAM [Suspect]
     Active Substance: LEVETIRACETAM
     Indication: Rasmussen encephalitis
     Dosage: 3000 MILLIGRAM, QD
     Route: 065
  7. LEVETIRACETAM [Suspect]
     Active Substance: LEVETIRACETAM
     Dosage: 3000 MILLIGRAM, QD
     Route: 065
  8. LEVETIRACETAM [Suspect]
     Active Substance: LEVETIRACETAM
     Dosage: 3000 MILLIGRAM, QD
  9. OXCARBAZEPINE [Suspect]
     Active Substance: OXCARBAZEPINE
     Indication: Partial seizures
  10. OXCARBAZEPINE [Suspect]
     Active Substance: OXCARBAZEPINE
     Indication: Rasmussen encephalitis
     Route: 065
  11. OXCARBAZEPINE [Suspect]
     Active Substance: OXCARBAZEPINE
     Route: 065
  12. OXCARBAZEPINE [Suspect]
     Active Substance: OXCARBAZEPINE
  13. LACOSAMIDE [Suspect]
     Active Substance: LACOSAMIDE
     Indication: Partial seizures
     Dosage: 400 MILLIGRAM, QD
  14. LACOSAMIDE [Suspect]
     Active Substance: LACOSAMIDE
     Indication: Rasmussen encephalitis
     Dosage: 400 MILLIGRAM, QD
     Route: 065
  15. LACOSAMIDE [Suspect]
     Active Substance: LACOSAMIDE
     Dosage: 400 MILLIGRAM, QD
     Route: 065
  16. LACOSAMIDE [Suspect]
     Active Substance: LACOSAMIDE
     Dosage: 400 MILLIGRAM, QD
  17. ZONISAMIDE [Suspect]
     Active Substance: ZONISAMIDE
     Indication: Partial seizures
  18. ZONISAMIDE [Suspect]
     Active Substance: ZONISAMIDE
     Indication: Rasmussen encephalitis
     Route: 065
  19. ZONISAMIDE [Suspect]
     Active Substance: ZONISAMIDE
     Route: 065
  20. ZONISAMIDE [Suspect]
     Active Substance: ZONISAMIDE
  21. TOPIRAMATE [Suspect]
     Active Substance: TOPIRAMATE
     Indication: Partial seizures
  22. TOPIRAMATE [Suspect]
     Active Substance: TOPIRAMATE
     Indication: Rasmussen encephalitis
     Route: 065
  23. TOPIRAMATE [Suspect]
     Active Substance: TOPIRAMATE
     Route: 065
  24. TOPIRAMATE [Suspect]
     Active Substance: TOPIRAMATE
  25. CARBAMAZEPINE [Suspect]
     Active Substance: CARBAMAZEPINE
     Indication: Partial seizures
     Dosage: 600 MILLIGRAM, QD
  26. CARBAMAZEPINE [Suspect]
     Active Substance: CARBAMAZEPINE
     Indication: Rasmussen encephalitis
     Dosage: 600 MILLIGRAM, QD
     Route: 065
  27. CARBAMAZEPINE [Suspect]
     Active Substance: CARBAMAZEPINE
     Dosage: 600 MILLIGRAM, QD
     Route: 065
  28. CARBAMAZEPINE [Suspect]
     Active Substance: CARBAMAZEPINE
     Dosage: 600 MILLIGRAM, QD
  29. CLOBAZAM [Suspect]
     Active Substance: CLOBAZAM
     Indication: Partial seizures
     Dosage: 30 MILLIGRAM, QD
     Route: 065
  30. CLOBAZAM [Suspect]
     Active Substance: CLOBAZAM
     Indication: Rasmussen encephalitis
     Dosage: 30 MILLIGRAM, QD
  31. CLOBAZAM [Suspect]
     Active Substance: CLOBAZAM
     Dosage: 30 MILLIGRAM, QD
  32. CLOBAZAM [Suspect]
     Active Substance: CLOBAZAM
     Dosage: 30 MILLIGRAM, QD
     Route: 065
  33. CLOBAZAM [Suspect]
     Active Substance: CLOBAZAM
     Dosage: 20 MILLIGRAM, QD
     Route: 065
  34. CLOBAZAM [Suspect]
     Active Substance: CLOBAZAM
     Dosage: 20 MILLIGRAM, QD
  35. CLOBAZAM [Suspect]
     Active Substance: CLOBAZAM
     Dosage: 20 MILLIGRAM, QD
  36. CLOBAZAM [Suspect]
     Active Substance: CLOBAZAM
     Dosage: 20 MILLIGRAM, QD
     Route: 065
  37. PERAMPANEL [Suspect]
     Active Substance: PERAMPANEL
     Indication: Partial seizures
  38. PERAMPANEL [Suspect]
     Active Substance: PERAMPANEL
     Indication: Rasmussen encephalitis
     Route: 065
  39. PERAMPANEL [Suspect]
     Active Substance: PERAMPANEL
     Route: 065
  40. PERAMPANEL [Suspect]
     Active Substance: PERAMPANEL
  41. BRIVARACETAM [Suspect]
     Active Substance: BRIVARACETAM
     Indication: Partial seizures
  42. BRIVARACETAM [Suspect]
     Active Substance: BRIVARACETAM
     Indication: Rasmussen encephalitis
     Route: 065
  43. BRIVARACETAM [Suspect]
     Active Substance: BRIVARACETAM
     Route: 065
  44. BRIVARACETAM [Suspect]
     Active Substance: BRIVARACETAM

REACTIONS (1)
  - Drug ineffective [Unknown]
